FAERS Safety Report 4730355-X (Version None)
Quarter: 2005Q3

REPORT INFORMATION
  Report Type: 
  Country: None (occurrence: None)
  Receive Date: 20050801
  Receipt Date: 20050721
  Transmission Date: 20060218
  Serious: Yes (Hospitalization)
  Sender: FDA-Public Use
  Company Number: JP-GILEAD-2005-0008567

PATIENT
  Sex: Male

DRUGS (12)
  1. VIREAD [Suspect]
     Indication: HIV INFECTION
     Route: 048
     Dates: start: 20041206
  2. VIREAD [Suspect]
     Route: 048
     Dates: start: 20040708, end: 20040812
  3. STOCRIN [Suspect]
     Indication: HIV INFECTION
     Route: 048
     Dates: start: 20040708, end: 20040812
  4. STOCRIN [Suspect]
     Route: 048
     Dates: start: 20040304, end: 20040614
  5. EPIVIR [Suspect]
     Indication: HIV INFECTION
     Route: 048
     Dates: start: 20040708, end: 20040812
  6. EPIVIR [Suspect]
     Route: 048
     Dates: start: 20040417, end: 20040614
  7. COMBIVIR [Suspect]
     Indication: HIV INFECTION
     Route: 048
     Dates: start: 20040304, end: 20040416
  8. ZERIT [Suspect]
     Indication: HIV INFECTION
     Route: 048
     Dates: start: 20040417, end: 20040420
  9. ZIAGEN [Suspect]
     Indication: HIV INFECTION
     Route: 048
     Dates: start: 20040421, end: 20040614
  10. LOXONIN [Concomitant]
     Dates: start: 20040401
  11. LENDORMIN [Concomitant]
     Dates: start: 20040401
  12. AMOBAN [Concomitant]
     Dates: start: 20040715

REACTIONS (1)
  - HYPOAESTHESIA [None]
